FAERS Safety Report 16485275 (Version 6)
Quarter: 2020Q4

REPORT INFORMATION
  Report Type: Report from Study
  Country: CA (occurrence: CA)
  Receive Date: 20190627
  Receipt Date: 20201202
  Transmission Date: 20210113
  Serious: Yes (Death, Hospitalization, Other)
  Sender: FDA-Public Use
  Company Number: PHHY2017CA079499

PATIENT
  Age: 60 Year
  Sex: Female
  Weight: 128.8 kg

DRUGS (4)
  1. SANDOSTATIN LAR DEPOT [Suspect]
     Active Substance: OCTREOTIDE ACETATE
  2. SANDOSTATIN LAR DEPOT [Suspect]
     Active Substance: OCTREOTIDE ACETATE
     Indication: ACROMEGALY
     Dosage: 30 MG, QMO
     Route: 030
     Dates: start: 20060802
  3. SANDOSTATIN LAR DEPOT [Suspect]
     Active Substance: OCTREOTIDE ACETATE
  4. PRAMIPEXOLE. [Concomitant]
     Active Substance: PRAMIPEXOLE
     Indication: PRODUCT USED FOR UNKNOWN INDICATION
     Dosage: UNK
     Route: 065

REACTIONS (30)
  - Gait inability [Recovering/Resolving]
  - Cardiac disorder [Unknown]
  - Haematocrit decreased [Unknown]
  - Death [Fatal]
  - Malaise [Unknown]
  - Loss of consciousness [Unknown]
  - Troponin I increased [Unknown]
  - Peripheral swelling [Unknown]
  - Cardiac failure congestive [Unknown]
  - Diabetes mellitus [Unknown]
  - Blood creatinine increased [Unknown]
  - Haemoglobin decreased [Unknown]
  - Blood pressure systolic increased [Unknown]
  - Diarrhoea [Unknown]
  - Limb injury [Recovering/Resolving]
  - Fall [Unknown]
  - Blood cholesterol abnormal [Unknown]
  - Gangrene [Unknown]
  - Cerebrovascular accident [Unknown]
  - Fractured coccyx [Unknown]
  - Hypotension [Unknown]
  - Bacterial test positive [Unknown]
  - Paraplegia [Unknown]
  - Blood urea increased [Unknown]
  - Hypoaesthesia [Unknown]
  - Visual impairment [Unknown]
  - Weight decreased [Unknown]
  - Chest pain [Recovered/Resolved]
  - Blood urine present [Unknown]
  - Abdominal pain upper [Unknown]

NARRATIVE: CASE EVENT DATE: 201705
